FAERS Safety Report 24581098 (Version 1)
Quarter: 2024Q4

REPORT INFORMATION
  Report Type: Spontaneous
  Country: CH (occurrence: CH)
  Receive Date: 20241105
  Receipt Date: 20241105
  Transmission Date: 20250115
  Serious: Yes (Hospitalization)
  Sender: SANDOZ
  Company Number: None

PATIENT
  Age: 82 Year
  Sex: Male

DRUGS (15)
  1. GLYXAMBI [Suspect]
     Active Substance: EMPAGLIFLOZIN\LINAGLIPTIN
     Indication: Insulin-requiring type 2 diabetes mellitus
     Dosage: 10/5 MG, 1-0-0-0, STOPPED, TAKING FOR SEVERAL YEARS,  AGAIN IN THE COURSE OF JUNE 2024, PREVIOUSLY..
     Route: 048
     Dates: start: 202406, end: 20240723
  2. GLYXAMBI [Suspect]
     Active Substance: EMPAGLIFLOZIN\LINAGLIPTIN
     Dosage: 10/5 MG, 1-0-0-0, STOPPED, TAKING FOR SEVERAL YEARS,  AGAIN IN THE COURSE OF JUNE 2024, PREVIOUSLY..
     Route: 048
     Dates: start: 2019, end: 202403
  3. KEPPRA [Suspect]
     Active Substance: LEVETIRACETAM
     Indication: Epilepsy
     Dosage: USE FOR SEVERAL YEARS (2009)
     Route: 065
     Dates: start: 2009
  4. AMLODIPINE BESYLATE\OLMESARTAN MEDOXOMIL [Suspect]
     Active Substance: AMLODIPINE BESYLATE\OLMESARTAN MEDOXOMIL
     Indication: Hypertension
     Dosage: 1 WK N/A DOSE EVERY N/A N/A
     Route: 048
     Dates: start: 202406, end: 20240723
  5. FOLIC ACID [Concomitant]
     Active Substance: FOLIC ACID
     Indication: Product used for unknown indication
     Dosage: 5 MG N/A DOSE EVERY 1 WEEK
     Route: 048
  6. ATORVASTATIN [Concomitant]
     Active Substance: ATORVASTATIN
     Indication: Product used for unknown indication
     Dosage: ATORVASTATIN VIATRIS O. MEPHA FILMTABL BLIST 40 0 - 0  - 1 - 0 P.O.
     Route: 048
  7. CANDESARTAN CILEXETIL\HYDROCHLOROTHIAZIDE [Concomitant]
     Active Substance: CANDESARTAN CILEXETIL\HYDROCHLOROTHIAZIDE
     Indication: Hypertension
     Dosage: CANDESARTAN HCT ZENTIVA TABL 8/12.5 MG 1 - 0 - 0 0  P.O. AT LEAST SINCE 03/2024 UNTIL AT LEAST 05.06
     Route: 048
     Dates: start: 202403, end: 202406
  8. JARDIANCE [Concomitant]
     Active Substance: EMPAGLIFLOZIN
     Indication: Insulin-requiring type 2 diabetes mellitus
     Dosage: 10 MG N/A DOSE EVERY 1 DAY
     Route: 048
     Dates: start: 202403, end: 202406
  9. JARDIANCE [Concomitant]
     Active Substance: EMPAGLIFLOZIN
     Dosage: 10 MG N/A DOSE EVERY 1 DAY
     Route: 048
     Dates: start: 20240723
  10. CALCIUM CARBONATE\CHOLECALCIFEROL [Concomitant]
     Active Substance: CALCIUM CARBONATE\CHOLECALCIFEROL
     Indication: Product used for unknown indication
     Dosage: KALCIPOS-D3 FILMTABL DS 500/800 0 - 1 - 0 - 0 P.O.
     Route: 048
  11. MAGNESIOCARD ORANGE [Concomitant]
     Indication: Product used for unknown indication
     Dosage: 10 MMOL N/A DOSE EVERY 1 DAY
     Route: 048
  12. PHENPROCOUMON [Concomitant]
     Active Substance: PHENPROCOUMON
     Indication: Product used for unknown indication
     Dosage: MARCOUMAR TABL 3 MG 0 - 0 - 0.75 - 0 P.O.
     Route: 048
  13. PRADIF T [Concomitant]
     Active Substance: TAMSULOSIN HYDROCHLORIDE
     Indication: Product used for unknown indication
     Dosage: 400 UG N/A DOSE EVERY 1 DAY
     Route: 048
  14. LINAGLIPTIN [Concomitant]
     Active Substance: LINAGLIPTIN
     Indication: Insulin-requiring type 2 diabetes mellitus
     Dosage: 5 MG N/A DOSE EVERY 1 DAY
     Route: 048
     Dates: start: 202403, end: 202406
  15. TRESIBA [Concomitant]
     Active Substance: INSULIN DEGLUDEC
     Indication: Insulin-requiring type 2 diabetes mellitus
     Dosage: 24 WK N/A DOSE EVERY 1 DAY
     Route: 058

REACTIONS (2)
  - Pemphigoid [Recovering/Resolving]
  - Linear IgA disease [Recovering/Resolving]

NARRATIVE: CASE EVENT DATE: 20240701
